FAERS Safety Report 10358337 (Version 1)
Quarter: 2014Q3

REPORT INFORMATION
  Report Type: Spontaneous
  Country: US (occurrence: US)
  Receive Date: 20140801
  Receipt Date: 20140801
  Transmission Date: 20150326
  Serious: No
  Sender: FDA-Public Use
  Company Number: US-PFIZER INC-2014212660

PATIENT
  Age: 54 Year
  Sex: Female
  Weight: 49.89 kg

DRUGS (4)
  1. CLONIDINE. [Concomitant]
     Active Substance: CLONIDINE
     Indication: HYPERTENSION
     Dosage: 0.1 MG (BY TAKING ONE IN THE MORNING AND ONE AT NIGHT), 2X/DAY
  2. AMITRIPTYLINE [Concomitant]
     Active Substance: AMITRIPTYLINE
     Dosage: 25 MG, 1X/DAY AT NIGHT
  3. TRAZODONE [Concomitant]
     Active Substance: TRAZODONE HYDROCHLORIDE
     Dosage: 150 MG, 1X/DAY
  4. LYRICA [Suspect]
     Active Substance: PREGABALIN
     Indication: FIBROMYALGIA
     Dosage: 50 MG (3 TO 4 TIMES A DAY ), UNK
     Route: 048
     Dates: start: 2004

REACTIONS (7)
  - Gait disturbance [Unknown]
  - Somnolence [Unknown]
  - Dry mouth [Unknown]
  - Therapeutic response changed [Unknown]
  - Pre-existing condition improved [Unknown]
  - Confusional state [Unknown]
  - Local swelling [Unknown]
